FAERS Safety Report 8260375 (Version 5)
Quarter: 2012Q4

REPORT INFORMATION
  Report Type: 
  Country: FR (occurrence: FR)
  Receive Date: 20111123
  Receipt Date: 20121128
  Transmission Date: 20130627
  Serious: Yes (Disabling, Other)
  Sender: FDA-Public Use
  Company Number: FR-BIOGENIDEC-2011BI044061

PATIENT
  Age: 35 Year
  Sex: Male

DRUGS (1)
  1. TYSABRI [Suspect]
     Indication: MULTIPLE SCLEROSIS
     Route: 042
     Dates: start: 200801, end: 201011

REACTIONS (2)
  - Rebound effect [Unknown]
  - Multiple sclerosis relapse [Recovered/Resolved with Sequelae]
